FAERS Safety Report 5224065-2 (Version None)
Quarter: 2007Q1

REPORT INFORMATION
  Report Type: 
  Country: None (occurrence: None)
  Receive Date: 20070130
  Receipt Date: 20070118
  Transmission Date: 20070707
  Serious: Yes (Death, Life-Threatening, Hospitalization, Other)
  Sender: FDA-Public Use
  Company Number: HQWYE050101NOV06

PATIENT
  Sex: Male
  Weight: 68 kg

DRUGS (21)
  1. MYLOTARG [Suspect]
     Indication: ACUTE MYELOID LEUKAEMIA RECURRENT
     Route: 041
     Dates: start: 20060905, end: 20060905
  2. MYLOTARG [Suspect]
     Route: 041
     Dates: start: 20060919, end: 20060919
  3. NOVANTRONE [Concomitant]
     Indication: ACUTE MYELOID LEUKAEMIA RECURRENT
     Dosage: UNKNOWN DOSE/DAY
     Route: 042
     Dates: start: 20060906, end: 20060912
  4. POLYMYXIN B SULFATE [Concomitant]
     Indication: PROPHYLAXIS
     Route: 048
     Dates: start: 20060901, end: 20061005
  5. FAMOTIDINE [Concomitant]
     Indication: PROPHYLAXIS
     Route: 048
     Dates: start: 20060901, end: 20060926
  6. FAMOTIDINE [Concomitant]
     Route: 042
     Dates: start: 20060926, end: 20061015
  7. BACTRIM [Concomitant]
     Indication: PROPHYLAXIS
     Route: 048
     Dates: start: 20060901, end: 20061005
  8. MIDAZOLAM HCL [Concomitant]
     Indication: SEDATION
     Route: 041
     Dates: start: 20061010, end: 20061015
  9. VFEND [Concomitant]
     Indication: PROPHYLAXIS
     Route: 048
     Dates: start: 20060901, end: 20060925
  10. VFEND [Concomitant]
     Route: 041
     Dates: start: 20060926, end: 20061015
  11. SELBEX [Concomitant]
     Indication: PROPHYLAXIS
     Route: 048
     Dates: start: 20060901, end: 20060926
  12. KYTRIL [Concomitant]
     Indication: PROPHYLAXIS
     Route: 042
     Dates: start: 20060906, end: 20060912
  13. OXYCONTIN [Concomitant]
     Indication: PAIN
     Route: 048
     Dates: start: 20060922, end: 20060923
  14. OXYCONTIN [Concomitant]
     Route: 048
     Dates: start: 20060925, end: 20060926
  15. OXYCONTIN [Concomitant]
     Route: 048
     Dates: start: 20060927, end: 20060928
  16. OXYCONTIN [Concomitant]
     Route: 048
     Dates: start: 20060929, end: 20061001
  17. OXYCONTIN [Concomitant]
     Route: 048
     Dates: start: 20061002, end: 20061004
  18. PENTAZOCINE LACTATE [Concomitant]
     Indication: PAIN
     Route: 041
     Dates: start: 20060924, end: 20061015
  19. PANTOL [Concomitant]
     Indication: ILEUS
     Route: 041
     Dates: start: 20061008, end: 20061015
  20. CYTARABINE [Concomitant]
     Indication: ACUTE MYELOID LEUKAEMIA RECURRENT
     Dosage: UNKNOWN DOSE/DAY
     Route: 042
     Dates: start: 20060906, end: 20060912
  21. ALLORINE [Concomitant]
     Indication: PROPHYLAXIS
     Route: 048
     Dates: start: 20060901, end: 20060926

REACTIONS (16)
  - ACUTE RESPIRATORY DISTRESS SYNDROME [None]
  - ANAEMIA [None]
  - CELLULITIS [None]
  - DISSEMINATED INTRAVASCULAR COAGULATION [None]
  - DYSPHAGIA [None]
  - HEPATIC FUNCTION ABNORMAL [None]
  - HERPES SIMPLEX [None]
  - HYPOALBUMINAEMIA [None]
  - MOUTH HAEMORRHAGE [None]
  - NEUTROPHIL COUNT DECREASED [None]
  - OTITIS EXTERNA [None]
  - PNEUMONIA [None]
  - RENAL IMPAIRMENT [None]
  - SEPSIS [None]
  - SEPTIC SHOCK [None]
  - STOMATITIS [None]
